FAERS Safety Report 7694031-6 (Version None)
Quarter: 2011Q3

REPORT INFORMATION
  Report Type: 
  Country: None (occurrence: None)
  Receive Date: 20110819
  Receipt Date: 20110808
  Transmission Date: 20111222
  Serious: Yes (Hospitalization, Other)
  Sender: FDA-Public Use
  Company Number: DE-ELI_LILLY_AND_COMPANY-DE201107000077

PATIENT
  Age: 73 Year
  Sex: Male

DRUGS (8)
  1. PENTAERYTHRITOL TETRANITRATE [Concomitant]
     Dosage: 80 MG, UNKNOWN
  2. RAMIPRIL [Concomitant]
  3. EZETIMIBE [Concomitant]
  4. EXENATIDE [Suspect]
     Indication: DIABETES MELLITUS
     Dosage: 10 UG, UNKNOWN
     Route: 058
     Dates: start: 20101101
  5. ALLOPURINOL [Concomitant]
     Dosage: 300 DF, UNK
  6. ASPIRIN [Concomitant]
  7. TORSEMIDE [Concomitant]
  8. METFORMIN HCL [Concomitant]
     Dosage: 1000 MG, BID

REACTIONS (4)
  - NERVOUSNESS [None]
  - STRESS [None]
  - LOSS OF CONSCIOUSNESS [None]
  - SYNCOPE [None]
